FAERS Safety Report 6176300-4 (Version None)
Quarter: 2009Q2

REPORT INFORMATION
  Report Type: 
  Country: None (occurrence: None)
  Receive Date: 20090501
  Receipt Date: 20090422
  Transmission Date: 20091009
  Serious: Yes (Other)
  Sender: FDA-Public Use
  Company Number: FR-PFIZER INC-2009201381

PATIENT

DRUGS (8)
  1. SOLU-MEDROL [Suspect]
     Indication: LYMPHOMA
     Dosage: 80 MG, CYCLIC
     Route: 042
     Dates: start: 20090212
  2. PRETERAX [Suspect]
     Indication: HYPERTENSION
     Dosage: 1 DF, 1X/DAY
     Route: 048
  3. CYCLOPHOSPHAMIDE [Suspect]
     Indication: LYMPHOMA
     Dosage: 720 MG, CYCLIC
     Route: 042
     Dates: start: 20090212
  4. ADRIBLASTINE [Suspect]
     Indication: LYMPHOMA
     Dosage: 45 MG, CYCLIC
     Route: 042
     Dates: start: 20090212
  5. MABTHERA [Suspect]
     Indication: LYMPHOMA
     Dosage: 675 MG, CYCLIC
     Route: 042
     Dates: start: 20090212
  6. ONCOVIN [Suspect]
     Indication: LYMPHOMA
     Dosage: 1 MG, CYCLIC
     Route: 042
     Dates: start: 20090212
  7. ARANESP [Suspect]
     Indication: LYMPHOMA
     Dosage: 150 UG, CYCLIC
     Route: 058
     Dates: start: 20090209, end: 20090309
  8. CORTANCYL [Concomitant]
     Dosage: UNK
     Dates: start: 20090213, end: 20090216

REACTIONS (2)
  - CONVULSION [None]
  - HYPONATRAEMIA [None]
